FAERS Safety Report 12162821 (Version 1)
Quarter: 2016Q1

REPORT INFORMATION
  Report Type: Spontaneous
  Country: US (occurrence: None)
  Receive Date: 20160308
  Receipt Date: 20160308
  Transmission Date: 20160526
  Serious: No
  Sender: FDA-Public Use
  Company Number: None

PATIENT
  Age: 65 Year
  Sex: Female

DRUGS (4)
  1. VELCADE [Suspect]
     Active Substance: BORTEZOMIB
     Indication: PLASMA CELL MYELOMA
     Route: 058
     Dates: start: 20140601, end: 20151015
  2. KYPROLIS [Concomitant]
     Active Substance: CARFILZOMIB
  3. DARZALEX [Suspect]
     Active Substance: DARATUMUMAB
     Indication: PLASMA CELL MYELOMA
     Dates: start: 20160203
  4. VELCADE [Concomitant]
     Active Substance: BORTEZOMIB

REACTIONS (4)
  - Depressed mood [None]
  - Crying [None]
  - Vomiting [None]
  - Hypophagia [None]
